FAERS Safety Report 7904507-1 (Version None)
Quarter: 2011Q4

REPORT INFORMATION
  Report Type: 
  Country: None (occurrence: None)
  Receive Date: 20111109
  Receipt Date: 20111104
  Transmission Date: 20120403
  Serious: Yes (Hospitalization)
  Sender: FDA-Public Use
  Company Number: SE-AMGEN-SWENI2011054227

PATIENT
  Age: 64 Year
  Sex: Male

DRUGS (9)
  1. FOLIC ACID [Concomitant]
     Dosage: 5 MG, UNK
     Dates: start: 20100806
  2. METOPROLOL TARTRATE [Concomitant]
     Dosage: 100 MG, BID
     Dates: start: 20050427
  3. AMLODIPINE [Concomitant]
     Dosage: 5 MG, BID
     Dates: start: 20110709
  4. BEHEPAN [Concomitant]
     Dosage: 1 MG, QD
     Dates: start: 20050427
  5. FUROSEMIDE [Concomitant]
     Dosage: 40 MG, UNK
     Dates: start: 20110912
  6. ENALAPRIL MALEATE [Concomitant]
     Dosage: 5 MG, BID
     Dates: start: 20110112
  7. ROMIPLOSTIM [Suspect]
     Indication: IDIOPATHIC THROMBOCYTOPENIC PURPURA
     Dosage: 150 MUG, QWK
     Route: 058
     Dates: start: 20100705
  8. PROLIA [Concomitant]
     Dosage: 60 MG, Q6MO
     Dates: start: 20101215
  9. CALCIUM CARBONATE [Concomitant]
     Dosage: 500 MG, BID
     Dates: start: 20110809

REACTIONS (1)
  - TRANSIENT ISCHAEMIC ATTACK [None]
